FAERS Safety Report 5732198-7 (Version None)
Quarter: 2008Q2

REPORT INFORMATION
  Report Type: 
  Country: None (occurrence: None)
  Receive Date: 20080508
  Receipt Date: 20080430
  Transmission Date: 20081010
  Serious: Yes (Disabling, Other)
  Sender: FDA-Public Use
  Company Number: AU-PFIZER INC-2008028161

PATIENT
  Sex: Female
  Weight: 75.5 kg

DRUGS (4)
  1. LIPITOR [Suspect]
     Dosage: DAILY DOSE:40MG-FREQ:FREQUENCY: OD
     Route: 048
     Dates: start: 20050811, end: 20070301
  2. ADALAT [Concomitant]
  3. MICARDIS [Concomitant]
  4. TENORMIN [Concomitant]

REACTIONS (10)
  - ALANINE AMINOTRANSFERASE ABNORMAL [None]
  - ASPARTATE AMINOTRANSFERASE ABNORMAL [None]
  - BLOOD CREATINE PHOSPHOKINASE INCREASED [None]
  - BLOOD CREATININE DECREASED [None]
  - COLONIC POLYP [None]
  - FATIGUE [None]
  - MOBILITY DECREASED [None]
  - PAIN IN EXTREMITY [None]
  - PERNICIOUS ANAEMIA [None]
  - RHABDOMYOLYSIS [None]
